FAERS Safety Report 19385168 (Version 2)
Quarter: 2021Q2

REPORT INFORMATION
  Report Type: Spontaneous
  Country: US (occurrence: US)
  Receive Date: 20210608
  Receipt Date: 20210616
  Transmission Date: 20210717
  Serious: Yes (Death)
  Sender: FDA-Public Use
  Company Number: US-GW PHARMA-202105USGW02716

PATIENT

DRUGS (1)
  1. EPIDIOLEX [Suspect]
     Active Substance: CANNABIDIOL
     Indication: LENNOX-GASTAUT SYNDROME
     Dosage: 2.6 ML
     Route: 048
     Dates: start: 20200225

REACTIONS (1)
  - Death [Fatal]

NARRATIVE: CASE EVENT DATE: 20210525
